FAERS Safety Report 18960550 (Version 4)
Quarter: 2021Q2

REPORT INFORMATION
  Report Type: Spontaneous
  Country: US (occurrence: US)
  Receive Date: 20210303
  Receipt Date: 20210607
  Transmission Date: 20210717
  Serious: Yes (Hospitalization, Other)
  Sender: FDA-Public Use
  Company Number: US-ROCHE-2781713

PATIENT
  Age: 87 Year
  Sex: Male
  Weight: 45.4 kg

DRUGS (1)
  1. ESBRIET [Suspect]
     Active Substance: PIRFENIDONE
     Indication: IDIOPATHIC PULMONARY FIBROSIS
     Dosage: ONGOING : HOLDS
     Route: 048
     Dates: start: 201611

REACTIONS (9)
  - Dizziness [Recovered/Resolved]
  - Gastric cancer [Recovered/Resolved]
  - Gastric ulcer haemorrhage [Recovered/Resolved]
  - Anaemia [Unknown]
  - Nausea [Unknown]
  - Intentional product misuse [Unknown]
  - Upper gastrointestinal haemorrhage [Unknown]
  - Weight decreased [Unknown]
  - Decreased appetite [Unknown]

NARRATIVE: CASE EVENT DATE: 202103
